FAERS Safety Report 21034650 (Version 1)
Quarter: 2022Q3

REPORT INFORMATION
  Report Type: Spontaneous
  Country: DE (occurrence: DE)
  Receive Date: 20220701
  Receipt Date: 20220701
  Transmission Date: 20221026
  Serious: Yes (Hospitalization, Other)
  Sender: FDA-Public Use
  Company Number: DE-BRISTOL-MYERS SQUIBB COMPANY-2022-063726

PATIENT
  Age: 79 Year
  Sex: Male

DRUGS (3)
  1. ELIQUIS [Suspect]
     Active Substance: APIXABAN
     Indication: Atrial fibrillation
     Route: 065
     Dates: start: 20180105
  2. METOPROLOL [Concomitant]
     Active Substance: METOPROLOL
     Indication: Atrial fibrillation
     Route: 065
     Dates: start: 20180105
  3. TORSEMIDE [Concomitant]
     Active Substance: TORSEMIDE
     Indication: Atrial fibrillation
     Route: 065
     Dates: start: 2018

REACTIONS (12)
  - Atrial fibrillation [Unknown]
  - Emphysema [Recovering/Resolving]
  - Pancreatitis acute [Recovering/Resolving]
  - Coronary artery disease [Unknown]
  - Prostatomegaly [Unknown]
  - Abdominal pain [Unknown]
  - Left ventricular dysfunction [Unknown]
  - Retroperitoneal lymphadenopathy [Unknown]
  - Pleural effusion [Unknown]
  - Mitral valve incompetence [Unknown]
  - Pulmonary arterial hypertension [Unknown]
  - Cardiac failure [Unknown]

NARRATIVE: CASE EVENT DATE: 20180101
